FAERS Safety Report 17878858 (Version 1)
Quarter: 2020Q2

REPORT INFORMATION
  Report Type: Report from Study
  Country: None (occurrence: US)
  Receive Date: 20200610
  Receipt Date: 20200610
  Transmission Date: 20200714
  Serious: Yes (Hospitalization)
  Sender: FDA-Public Use
  Company Number: US-ABBVIE-20K-163-3433618-00

PATIENT
  Age: 52 Year
  Sex: Male

DRUGS (1)
  1. HUMIRA [Suspect]
     Active Substance: ADALIMUMAB
     Indication: PSORIATIC ARTHROPATHY
     Route: 058
     Dates: start: 20190531, end: 202003

REACTIONS (5)
  - Arthralgia [Unknown]
  - Diverticulitis [Unknown]
  - Gastric ulcer [Unknown]
  - Cough [Unknown]
  - Thrombosis [Unknown]

NARRATIVE: CASE EVENT DATE: 202003
